FAERS Safety Report 7299475-2 (Version None)
Quarter: 2011Q1

REPORT INFORMATION
  Report Type: 
  Country: None (occurrence: None)
  Receive Date: 20110217
  Receipt Date: 20110209
  Transmission Date: 20110831
  Serious: Yes (Other)
  Sender: FDA-Public Use
  Company Number: ES-JNJFOC-20110204492

PATIENT
  Sex: Female

DRUGS (4)
  1. STELARA [Suspect]
     Indication: DRUG EXPOSURE DURING PREGNANCY
     Route: 015
  2. POLARAMINE [Suspect]
     Indication: PSORIASIS
     Route: 015
  3. METHYLPREDNISOLONE [Suspect]
     Indication: PSORIASIS
     Route: 015
  4. CYCLOPHOSPHAMIDE [Suspect]
     Indication: PSORIASIS
     Route: 015

REACTIONS (3)
  - ATRIOVENTRICULAR SEPTAL DEFECT [None]
  - PREMATURE BABY [None]
  - RIGHT AORTIC ARCH [None]
